FAERS Safety Report 12114067 (Version 1)
Quarter: 2016Q1

REPORT INFORMATION
  Report Type: Spontaneous
  Country: US (occurrence: None)
  Receive Date: 20160224
  Receipt Date: 20160224
  Transmission Date: 20160526
  Serious: No
  Sender: FDA-Public Use
  Company Number: None

PATIENT

DRUGS (5)
  1. TOUJEO [Suspect]
     Active Substance: INSULIN GLARGINE
  2. LISINOPRIL. [Suspect]
     Active Substance: LISINOPRIL
  3. METFORMIN [Concomitant]
     Active Substance: METFORMIN HYDROCHLORIDE
  4. GLIPERIDE [Concomitant]
     Active Substance: GLIMEPIRIDE
  5. LOVASTATIN. [Concomitant]
     Active Substance: LOVASTATIN

REACTIONS (3)
  - Blood glucose increased [None]
  - Glycosylated haemoglobin increased [None]
  - Blood glucose decreased [None]
